FAERS Safety Report 7307878 (Version 6)
Quarter: 2014Q1

REPORT INFORMATION
  Report Type: Report from Study
  Country: NZ (occurrence: NZ)
  Receive Date: 20100308
  Receipt Date: 20140219
  Transmission Date: 20141002
  Serious: Yes (Other)
  Sender: FDA-Public Use
  Company Number: PHHY2010NZ10348

PATIENT
  Sex: Male

DRUGS (2)
  1. LEPONEX / CLOZARIL [Suspect]
     Indication: SCHIZOPHRENIA
     Dosage: 2 TABLETS IN THE MORNING AND 4 TABLETS AT NIGHT
     Dates: start: 20091109
  2. AMISULPRIDE [Concomitant]
     Dosage: UNK

REACTIONS (16)
  - Swelling face [Not Recovered/Not Resolved]
  - Urinary incontinence [Not Recovered/Not Resolved]
  - Psychotic disorder [Unknown]
  - Salivary hypersecretion [Unknown]
  - Sedation [Not Recovered/Not Resolved]
  - Weight increased [Not Recovered/Not Resolved]
  - Abnormal behaviour [Unknown]
  - Middle insomnia [Unknown]
  - Swollen tongue [Not Recovered/Not Resolved]
  - Anxiety [Unknown]
  - Vomiting [Unknown]
  - Somnolence [Unknown]
  - Constipation [Unknown]
  - Dizziness [Unknown]
  - Agitation [Not Recovered/Not Resolved]
  - Drug ineffective [Unknown]
